FAERS Safety Report 4293867-1 (Version None)
Quarter: 2004Q1

REPORT INFORMATION
  Report Type: 
  Country: None (occurrence: None)
  Receive Date: 20040210
  Receipt Date: 20040202
  Transmission Date: 20041129
  Serious: Yes (Hospitalization)
  Sender: FDA-Public Use
  Company Number: USA-2004-0012345

PATIENT
  Sex: Female

DRUGS (1)
  1. SPECTRACEF [Suspect]
     Indication: BRONCHITIS
     Dosage: 400 MG, BID, ORAL
     Route: 048

REACTIONS (3)
  - BRONCHITIS ACUTE [None]
  - LEGIONELLA INFECTION [None]
  - PNEUMONIA [None]
